FAERS Safety Report 16907283 (Version 1)
Quarter: 2019Q4

REPORT INFORMATION
  Report Type: Spontaneous
  Country: JP (occurrence: JP)
  Receive Date: 20191011
  Receipt Date: 20191011
  Transmission Date: 20200122
  Serious: Yes (Other)
  Sender: FDA-Public Use
  Company Number: JP-TEVA-2019-JP-006692J

PATIENT
  Age: 68 Year
  Sex: Male

DRUGS (1)
  1. CLINDAMYCIN INJECTION 600MG ^TAIYO^ [Suspect]
     Active Substance: CLINDAMYCIN HYDROCHLORIDE
     Indication: INFECTION PROPHYLAXIS
     Dosage: 1200 MILLIGRAM DAILY;
     Route: 041
     Dates: start: 20191003, end: 20191005

REACTIONS (3)
  - Haemolytic anaemia [Recovered/Resolved]
  - Jaundice acholuric [Recovered/Resolved]
  - Product use in unapproved indication [Unknown]

NARRATIVE: CASE EVENT DATE: 20191005
